FAERS Safety Report 9136219 (Version 1)
Quarter: 2013Q1

REPORT INFORMATION
  Report Type: Spontaneous
  Country: US (occurrence: US)
  Receive Date: 20130304
  Receipt Date: 20130304
  Transmission Date: 20140127
  Serious: No
  Sender: FDA-Public Use
  Company Number: US-ABBOTT-12P-163-0979853-00

PATIENT
  Sex: Male

DRUGS (12)
  1. ANDROGEL [Suspect]
     Indication: BLOOD TESTOSTERONE DECREASED
     Dosage: 8 PUMPS, ONCE DAILY
     Route: 061
     Dates: start: 1996
  2. OXYCONTIN [Concomitant]
     Indication: BACK PAIN
  3. OXYCODONE [Concomitant]
     Indication: BACK PAIN
  4. GABAPENTIN [Concomitant]
     Indication: PRODUCT USED FOR UNKNOWN INDICATION
  5. LEVOTHYROXINE [Concomitant]
     Indication: HYPOTHYROIDISM
  6. DIAZEPAM [Concomitant]
     Indication: PRODUCT USED FOR UNKNOWN INDICATION
  7. METFORMIN [Concomitant]
     Indication: DIABETES MELLITUS
  8. OMEPRAZOLE [Concomitant]
     Indication: GASTROOESOPHAGEAL REFLUX DISEASE
  9. SIMVASTATIN [Concomitant]
     Indication: BLOOD CHOLESTEROL INCREASED
  10. BACLOFEN [Concomitant]
     Indication: MUSCLE SPASMS
  11. ANUSOL [Concomitant]
     Indication: ANORECTAL DISCOMFORT
  12. LIDOCAINE [Concomitant]
     Indication: ANORECTAL DISCOMFORT

REACTIONS (1)
  - Sensory disturbance [Not Recovered/Not Resolved]
